FAERS Safety Report 18265728 (Version 1)
Quarter: 2020Q3

REPORT INFORMATION
  Report Type: Spontaneous
  Country: US (occurrence: US)
  Receive Date: 20200914
  Receipt Date: 20200914
  Transmission Date: 20201103
  Serious: Yes (Other)
  Sender: FDA-Public Use
  Company Number: US-ROCHE-2676122

PATIENT
  Age: 58 Year
  Sex: Female

DRUGS (1)
  1. ALECENSA [Suspect]
     Active Substance: ALECTINIB HYDROCHLORIDE
     Indication: LUNG NEOPLASM MALIGNANT
     Dosage: ONGOING YES
     Route: 048
     Dates: start: 20200430

REACTIONS (3)
  - Fluid retention [Unknown]
  - Diabetes mellitus [Unknown]
  - Varices oesophageal [Unknown]

NARRATIVE: CASE EVENT DATE: 202008
